FAERS Safety Report 6727715-4 (Version None)
Quarter: 2010Q2

REPORT INFORMATION
  Report Type: 
  Country: None (occurrence: None)
  Receive Date: 20100514
  Receipt Date: 20100514
  Transmission Date: 20101027
  Serious: No
  Sender: FDA-Public Use
  Company Number: None

PATIENT
  Age: 50 Year
  Sex: Female
  Weight: 64.4108 kg

DRUGS (1)
  1. AMITIZA [Suspect]
     Indication: CONSTIPATION
     Dosage: 24MCG BID BUCCAL
     Route: 002
     Dates: start: 20100509, end: 20100511

REACTIONS (6)
  - DRUG INEFFECTIVE [None]
  - EAR DISCOMFORT [None]
  - EYE PRURITUS [None]
  - ORAL DISORDER [None]
  - RASH [None]
  - VULVOVAGINAL BURNING SENSATION [None]
